FAERS Safety Report 15372097 (Version 5)
Quarter: 2019Q4

REPORT INFORMATION
  Report Type: Spontaneous
  Country: US (occurrence: US)
  Receive Date: 20180911
  Receipt Date: 20191118
  Transmission Date: 20200122
  Serious: Yes (Congenital Anomaly, Other)
  Sender: FDA-Public Use
  Company Number: PHEH2018US038041

PATIENT
  Sex: Male

DRUGS (1)
  1. ZOFRAN [Suspect]
     Active Substance: ONDANSETRON HYDROCHLORIDE
     Indication: FOETAL EXPOSURE DURING PREGNANCY
     Dosage: MOTHER DOSE: 01 DF, TID
     Route: 064

REACTIONS (29)
  - Pyrexia [Unknown]
  - Perioral dermatitis [Unknown]
  - Eczema [Unknown]
  - Nose deformity [Unknown]
  - Snoring [Unknown]
  - Anxiety [Unknown]
  - Nasal obstruction [Unknown]
  - Palpitations [Unknown]
  - Oral pain [Unknown]
  - Generalised tonic-clonic seizure [Unknown]
  - Attention deficit/hyperactivity disorder [Unknown]
  - Gastrooesophageal reflux disease [Unknown]
  - Sebaceous naevus [Unknown]
  - Cardiac murmur [Unknown]
  - Nasopharyngitis [Unknown]
  - Micrognathia [Unknown]
  - Upper respiratory tract infection [Unknown]
  - Skin lesion [Unknown]
  - Wound [Unknown]
  - Nasal septum deviation [Unknown]
  - Cleft lip and palate [Unknown]
  - Tendonitis [Unknown]
  - Foetal exposure during pregnancy [Unknown]
  - Depression [Unknown]
  - Sleep apnoea syndrome [Unknown]
  - Fatigue [Unknown]
  - Rash [Unknown]
  - Dizziness [Unknown]
  - Toothache [Unknown]
